FAERS Safety Report 9706893 (Version 2)
Quarter: 2014Q1

REPORT INFORMATION
  Report Type: Spontaneous
  Country: US (occurrence: US)
  Receive Date: 20131125
  Receipt Date: 20140328
  Transmission Date: 20141002
  Serious: Yes (Other)
  Sender: FDA-Public Use
  Company Number: US-BAYER-2013-142499

PATIENT
  Age: 33 Year
  Sex: Female

DRUGS (3)
  1. OCELLA [Suspect]
  2. CATAFLAM [Concomitant]
  3. SEPTRA DS [Concomitant]

REACTIONS (2)
  - Gallbladder injury [None]
  - Gallbladder polyp [None]
